FAERS Safety Report 8545866-9 (Version None)
Quarter: 2012Q3

REPORT INFORMATION
  Report Type: 
  Country: None (occurrence: None)
  Receive Date: 20120727
  Receipt Date: 20111213
  Transmission Date: 20120928
  Serious: No
  Sender: FDA-Public Use
  Company Number: US-ASTRAZENECA-2011SE69563

PATIENT
  Age: 69 Year
  Sex: Female

DRUGS (1)
  1. SEROQUEL [Suspect]
     Indication: SLEEP DISORDER
     Route: 048

REACTIONS (5)
  - THERAPEUTIC RESPONSE INCREASED [None]
  - HALLUCINATION, VISUAL [None]
  - HYPERSOMNIA [None]
  - HALLUCINATION [None]
  - SOMNOLENCE [None]
